FAERS Safety Report 18007379 (Version 1)
Quarter: 2020Q3

REPORT INFORMATION
  Report Type: Spontaneous
  Country: US (occurrence: US)
  Receive Date: 20200710
  Receipt Date: 20200710
  Transmission Date: 20201103
  Serious: No
  Sender: FDA-Public Use
  Company Number: None

PATIENT
  Sex: Male

DRUGS (1)
  1. LAMOTRIGINE. [Suspect]
     Active Substance: LAMOTRIGINE
     Route: 048
     Dates: start: 20190709, end: 20190729

REACTIONS (4)
  - Dermatitis [None]
  - Drug hypersensitivity [None]
  - Folliculitis [None]
  - Skin abrasion [None]

NARRATIVE: CASE EVENT DATE: 20190729
